FAERS Safety Report 18630890 (Version 2)
Quarter: 2021Q3

REPORT INFORMATION
  Report Type: Spontaneous
  Country: US (occurrence: US)
  Receive Date: 20201218
  Receipt Date: 20210702
  Transmission Date: 20211014
  Serious: Yes (Other)
  Sender: FDA-Public Use
  Company Number: US-JNJFOC-20201221759

PATIENT
  Age: 33 Year
  Sex: Female

DRUGS (10)
  1. DIHYDROERGOTAMINE [Concomitant]
     Active Substance: DIHYDROERGOTAMINE
     Indication: MIGRAINE
     Route: 045
     Dates: start: 2018
  2. AIMOVIG [Concomitant]
     Active Substance: ERENUMAB-AOOE
     Indication: MIGRAINE
     Dates: start: 2019
  3. COLESTIPOL [Concomitant]
     Active Substance: COLESTIPOL
     Indication: GASTROINTESTINAL DISORDER
     Dates: start: 2018
  4. ESTRADIOL. [Concomitant]
     Active Substance: ESTRADIOL
     Indication: HORMONE REPLACEMENT THERAPY
     Dates: start: 2004
  5. MYRBETRIQ [Concomitant]
     Active Substance: MIRABEGRON
     Indication: BLADDER DISORDER
     Dates: start: 2020
  6. ELMIRON [Suspect]
     Active Substance: PENTOSAN POLYSULFATE SODIUM
     Route: 048
     Dates: start: 2008, end: 202012
  7. LOPERAMIDE [Concomitant]
     Active Substance: LOPERAMIDE
     Indication: GASTROINTESTINAL DISORDER
     Dates: start: 2018
  8. AZELAIC ACID. [Concomitant]
     Active Substance: AZELAIC ACID
     Indication: ROSACEA
     Dates: start: 2018
  9. AJOVY [Concomitant]
     Active Substance: FREMANEZUMAB-VFRM
     Indication: MIGRAINE
     Dates: start: 2018, end: 2019
  10. ELMIRON [Suspect]
     Active Substance: PENTOSAN POLYSULFATE SODIUM
     Indication: CYSTITIS INTERSTITIAL
     Route: 048
     Dates: start: 200403

REACTIONS (4)
  - Off label use [Unknown]
  - Age-related macular degeneration [Unknown]
  - Retinopathy [Unknown]
  - Incorrect dose administered [Unknown]

NARRATIVE: CASE EVENT DATE: 200403
